FAERS Safety Report 24669194 (Version 1)
Quarter: 2024Q4

REPORT INFORMATION
  Report Type: Spontaneous
  Country: US (occurrence: US)
  Receive Date: 20241127
  Receipt Date: 20241127
  Transmission Date: 20250115
  Serious: No
  Sender: GLENMARK
  Company Number: US-GLENMARK PHARMACEUTICALS-2024GMK090730

PATIENT

DRUGS (1)
  1. AZELAIC ACID [Suspect]
     Active Substance: AZELAIC ACID
     Indication: Rosacea
     Dosage: UNK
     Route: 065

REACTIONS (3)
  - Pain [Unknown]
  - Rosacea [Unknown]
  - Skin burning sensation [Unknown]
